FAERS Safety Report 4301886-1 (Version None)
Quarter: 2004Q1

REPORT INFORMATION
  Report Type: 
  Country: None (occurrence: None)
  Receive Date: 20040223
  Receipt Date: 20030319
  Transmission Date: 20041129
  Serious: Yes (Life-Threatening, Hospitalization)
  Sender: FDA-Public Use
  Company Number: WAES 0303USA02027

PATIENT
  Age: 70 Year
  Sex: Female

DRUGS (8)
  1. TYLENOL W/ CODEINE NO. 3 [Concomitant]
  2. PERCOCET [Concomitant]
  3. ASCORBIC ACID [Concomitant]
  4. BETA CAROTENE [Concomitant]
  5. CENTRUM [Concomitant]
  6. VIOXX [Suspect]
     Indication: BACK PAIN
     Route: 048
     Dates: start: 20000107, end: 20000201
  7. ZOCOR [Concomitant]
  8. VITAMIN E [Concomitant]

REACTIONS (39)
  - ACUTE RESPIRATORY DISTRESS SYNDROME [None]
  - ANURIA [None]
  - AORTIC VALVE SCLEROSIS [None]
  - ASPIRATION [None]
  - ATELECTASIS [None]
  - ATRIAL FIBRILLATION [None]
  - BACK PAIN [None]
  - BREAST TENDERNESS [None]
  - CARDIO-RESPIRATORY ARREST [None]
  - CHOLELITHIASIS [None]
  - COAGULOPATHY [None]
  - CORONARY ARTERY DISEASE [None]
  - DEPRESSION [None]
  - GENERAL PHYSICAL HEALTH DETERIORATION [None]
  - HYPERSENSITIVITY [None]
  - HYPOKALAEMIA [None]
  - HYPOTENSION [None]
  - INFLAMMATION [None]
  - INFLUENZA LIKE ILLNESS [None]
  - INJURY [None]
  - MULTI-ORGAN FAILURE [None]
  - MYOCARDIAL INFARCTION [None]
  - NAUSEA [None]
  - PANCREATITIS [None]
  - PERICARDIAL EFFUSION [None]
  - RADICULITIS [None]
  - RASH [None]
  - RENAL FAILURE [None]
  - RENAL FAILURE ACUTE [None]
  - RENAL TUBULAR NECROSIS [None]
  - SEPSIS [None]
  - TACHYCARDIA [None]
  - TOXIC SHOCK SYNDROME [None]
  - VAGINAL HAEMORRHAGE [None]
  - VENTRICULAR FIBRILLATION [None]
  - VENTRICULAR TACHYCARDIA [None]
  - VIRAL INFECTION [None]
  - VOMITING [None]
  - WHITE BLOOD CELL COUNT INCREASED [None]
